FAERS Safety Report 9292735 (Version 1)
Quarter: 2013Q2

REPORT INFORMATION
  Report Type: Spontaneous
  Country: US (occurrence: None)
  Receive Date: 20130515
  Receipt Date: 20130515
  Transmission Date: 20140414
  Serious: Yes (Other)
  Sender: FDA-Public Use
  Company Number: None

PATIENT
  Sex: Female
  Weight: 109.77 kg

DRUGS (1)
  1. METFORMIN HCL [Suspect]
     Indication: DIABETES MELLITUS
     Dosage: 1 TAB

REACTIONS (10)
  - Fatigue [None]
  - Muscular weakness [None]
  - Pharyngeal oedema [None]
  - Musculoskeletal stiffness [None]
  - Dry mouth [None]
  - Dysgeusia [None]
  - Abdominal pain upper [None]
  - Diarrhoea [None]
  - Hypoaesthesia oral [None]
  - Feeling abnormal [None]
